FAERS Safety Report 6395082-4 (Version None)
Quarter: 2009Q4

REPORT INFORMATION
  Report Type: 
  Country: None (occurrence: None)
  Receive Date: 20091009
  Receipt Date: 20090930
  Transmission Date: 20100525
  Serious: Yes (Other)
  Sender: FDA-Public Use
  Company Number: JP-ASTRAZENECA-2009SE09748

PATIENT
  Age: 40 Year
  Sex: Male

DRUGS (3)
  1. OMEPRAL [Suspect]
     Route: 048
  2. CAMOSTAT MESILATE [Concomitant]
     Route: 048
  3. URSODESOXYCHOLIC ACID [Concomitant]
     Route: 048

REACTIONS (1)
  - HYPOMAGNESAEMIA [None]
